FAERS Safety Report 14816559 (Version 1)
Quarter: 2018Q2

REPORT INFORMATION
  Report Type: Spontaneous
  Country: ES (occurrence: ES)
  Receive Date: 20180426
  Receipt Date: 20180426
  Transmission Date: 20180711
  Serious: Yes (Life-Threatening, Hospitalization)
  Sender: FDA-Public Use
  Company Number: ES-B.I. PHARMACEUTICALS,INC./RIDGEFIELD-2018-12-001518

PATIENT
  Age: 58 Year
  Sex: Male
  Weight: 100 kg

DRUGS (6)
  1. ATORVASTATINA MABO [Concomitant]
     Active Substance: ATORVASTATIN CALCIUM
     Indication: PRODUCT USED FOR UNKNOWN INDICATION
     Dosage: FILM-COATED TABLETS GENERIC PHARMACEUTICAL PRODUCT, 500 TABLETS
     Route: 048
     Dates: start: 20151211
  2. SPIRIVA [Suspect]
     Active Substance: TIOTROPIUM BROMIDE MONOHYDRATE
     Indication: PRODUCT USED FOR UNKNOWN INDICATION
     Dosage: SPIRIVA 18 MICROGRAMS, INHALATION POWDER, 1 INHALER + 30 CAPSULES
     Route: 055
     Dates: start: 20160401, end: 20180401
  3. TRANGOREX [Suspect]
     Active Substance: AMIODARONE HYDROCHLORIDE
     Indication: TACHYCARDIA
     Route: 048
     Dates: start: 201709, end: 20180401
  4. ENTRESTO [Suspect]
     Active Substance: SACUBITRIL\VALSARTAN
     Indication: PRODUCT USED FOR UNKNOWN INDICATION
     Dosage: STRENGTH: 24MG/26MG
     Route: 048
     Dates: start: 20180306, end: 20180401
  5. EPLERENONA SANDOZ [Suspect]
     Active Substance: EPLERENONE
     Indication: PRODUCT USED FOR UNKNOWN INDICATION
     Dosage: FILM-COATED TABLETS GENERIC PHARMACEUTICAL PRODUCT, 30 TABLETS
     Route: 048
     Dates: start: 20150713, end: 20180401
  6. BISOPROLOL NORMON [Concomitant]
     Indication: PRODUCT USED FOR UNKNOWN INDICATION
     Dosage: FILM-COATED TABLETS GENERIC PHARMACEUTICAL PRODUCT, 500 TABLETS
     Route: 048
     Dates: start: 20151001, end: 20180401

REACTIONS (1)
  - Ventricular tachycardia [Recovered/Resolved]

NARRATIVE: CASE EVENT DATE: 20180331
